FAERS Safety Report 4805491-X (Version None)
Quarter: 2005Q4

REPORT INFORMATION
  Report Type: 
  Country: None (occurrence: None)
  Receive Date: 20051018
  Receipt Date: 20050923
  Transmission Date: 20060501
  Serious: Yes (Death, Other)
  Sender: FDA-Public Use
  Company Number: US_0509122047

PATIENT
  Age: 50 Year
  Sex: Female

DRUGS (1)
  1. XIGRIS (DROTRECOGIN ALFA (ACTIVATED)) [Suspect]
     Dates: start: 20050903, end: 20050904

REACTIONS (2)
  - BACTERAEMIA [None]
  - EPISTAXIS [None]
